FAERS Safety Report 24405572 (Version 2)
Quarter: 2025Q1

REPORT INFORMATION
  Report Type: Spontaneous
  Country: US (occurrence: US)
  Receive Date: 20241007
  Receipt Date: 20250219
  Transmission Date: 20250409
  Serious: Yes (Other)
  Sender: ELI LILLY AND COMPANY
  Company Number: US-ELI_LILLY_AND_COMPANY-US202410002080

PATIENT
  Age: 53 Year
  Sex: Male
  Weight: 100 kg

DRUGS (8)
  1. TRULICITY [Suspect]
     Active Substance: DULAGLUTIDE
     Indication: Type 2 diabetes mellitus
     Dosage: 1.5 MG, WEEKLY (1/W)
     Route: 065
     Dates: start: 20230521, end: 20230829
  2. OZEMPIC [Suspect]
     Active Substance: SEMAGLUTIDE
     Indication: Type 2 diabetes mellitus
     Dosage: 0.25 MG, WEEKLY (1/W)
     Route: 065
     Dates: start: 20220315, end: 20220415
  3. OZEMPIC [Suspect]
     Active Substance: SEMAGLUTIDE
     Dosage: 0.25 MG, WEEKLY (1/W)
     Route: 065
     Dates: start: 20220415, end: 20220719
  4. ATORVASTATIN [Concomitant]
     Active Substance: ATORVASTATIN
     Indication: Blood cholesterol
     Dates: start: 20200315
  5. AMLODIPINE [Concomitant]
     Active Substance: AMLODIPINE BESYLATE
     Indication: Blood pressure measurement
     Dates: start: 20220720
  6. METFORMIN [Concomitant]
     Active Substance: METFORMIN HYDROCHLORIDE
     Indication: Diabetes mellitus
     Dates: start: 20230111
  7. OLMESARTAN [Concomitant]
     Active Substance: OLMESARTAN
     Indication: Blood pressure measurement
     Dates: start: 20230604
  8. SILDENAFIL [Concomitant]
     Active Substance: SILDENAFIL
     Indication: Erectile dysfunction
     Dates: start: 20221003

REACTIONS (4)
  - Impaired gastric emptying [Not Recovered/Not Resolved]
  - Vomiting [Not Recovered/Not Resolved]
  - Nausea [Not Recovered/Not Resolved]
  - Abdominal pain [Not Recovered/Not Resolved]

NARRATIVE: CASE EVENT DATE: 20231005
